FAERS Safety Report 10052602 (Version 1)
Quarter: 2014Q2

REPORT INFORMATION
  Report Type: Report from Study
  Country: US (occurrence: US)
  Receive Date: 20140402
  Receipt Date: 20140402
  Transmission Date: 20141212
  Serious: Yes (Death, Hospitalization, Other)
  Sender: FDA-Public Use
  Company Number: US-ABBVIE-14P-163-1218746-00

PATIENT
  Age: 65 Year
  Sex: Male
  Weight: 109.41 kg

DRUGS (12)
  1. TRICOR [Suspect]
     Indication: BLOOD CHOLESTEROL INCREASED
     Dates: start: 20050428, end: 20140318
  2. AMLODIPINE [Concomitant]
     Indication: HYPERTENSION
     Dates: start: 1998, end: 201403
  3. WELLBUTRIN [Concomitant]
     Indication: ANXIETY
     Dates: end: 201403
  4. WELLBUTRIN [Concomitant]
     Indication: DEPRESSION
  5. EFFEXOR [Concomitant]
     Indication: ANXIETY
     Dates: end: 201403
  6. EFFEXOR [Concomitant]
     Indication: DEPRESSION
  7. METOPROLOL [Concomitant]
     Indication: HYPERTENSION
     Dates: end: 201403
  8. LANTUS [Concomitant]
     Indication: DIABETES MELLITUS
     Dates: start: 1998, end: 201403
  9. HUMALOG [Concomitant]
     Indication: DIABETES MELLITUS
     Dates: start: 1998, end: 201403
  10. ZETIA [Concomitant]
     Indication: BLOOD CHOLESTEROL INCREASED
     Dates: end: 201403
  11. FLOMAX [Concomitant]
     Indication: BENIGN PROSTATIC HYPERPLASIA
     Dates: end: 201403
  12. ASPIRIN [Concomitant]
     Indication: CARDIOVASCULAR EVENT PROPHYLAXIS
     Dates: end: 201403

REACTIONS (12)
  - Arthritis [Fatal]
  - Staphylococcal infection [Fatal]
  - Respiratory failure [Fatal]
  - Myocardial infarction [Fatal]
  - Blood glucose increased [Fatal]
  - White blood cell count increased [Fatal]
  - Electrocardiogram T wave abnormal [Fatal]
  - Heart rate increased [Fatal]
  - Cerebrovascular accident [Recovered/Resolved]
  - Knee arthroplasty [Unknown]
  - Post procedural infection [Unknown]
  - Diabetes mellitus inadequate control [Unknown]
